FAERS Safety Report 25382843 (Version 1)
Quarter: 2025Q2

REPORT INFORMATION
  Report Type: Spontaneous
  Country: JP (occurrence: JP)
  Receive Date: 20250602
  Receipt Date: 20250602
  Transmission Date: 20250716
  Serious: Yes (Hospitalization)
  Sender: NOVO NORDISK
  Company Number: JP-NOVOPROD-1440090

PATIENT
  Age: 5 Decade
  Sex: Male

DRUGS (1)
  1. CONCIZUMAB [Suspect]
     Active Substance: CONCIZUMAB
     Indication: Haemophilia
     Route: 058
     Dates: start: 20240819

REACTIONS (1)
  - Colitis ulcerative [Unknown]

NARRATIVE: CASE EVENT DATE: 20250521
